FAERS Safety Report 8099225-6 (Version None)
Quarter: 2012Q1

REPORT INFORMATION
  Report Type: 
  Country: None (occurrence: None)
  Receive Date: 20120129
  Receipt Date: 20111005
  Transmission Date: 20120608
  Serious: No
  Sender: FDA-Public Use
  Company Number: US-ABBOTT-11P-163-0861141-00

PATIENT
  Age: 35 Year
  Sex: Female

DRUGS (3)
  1. MELOXICAM [Concomitant]
     Indication: ARTHRITIS
  2. DOXYCYCLINE [Concomitant]
     Indication: RASH
  3. HUMIRA [Suspect]
     Indication: PSORIASIS
     Dates: start: 20110411

REACTIONS (4)
  - DEVICE MALFUNCTION [None]
  - PRURITUS GENERALISED [None]
  - INJECTION SITE PAIN [None]
  - INCORRECT DOSE ADMINISTERED [None]
